FAERS Safety Report 17791570 (Version 3)
Quarter: 2025Q3

REPORT INFORMATION
  Report Type: Spontaneous
  Country: US (occurrence: US)
  Receive Date: 20200515
  Receipt Date: 20250728
  Transmission Date: 20251021
  Serious: Yes (Other)
  Sender: TEVA
  Company Number: US-TEVA-2020-US-1235310

PATIENT

DRUGS (1)
  1. FENTANYL [Suspect]
     Active Substance: FENTANYL
     Indication: Product used for unknown indication
     Route: 064

REACTIONS (2)
  - Developmental delay [Unknown]
  - Foetal exposure during pregnancy [Unknown]
